FAERS Safety Report 4312017-6 (Version None)
Quarter: 2004Q1

REPORT INFORMATION
  Report Type: 
  Country: None (occurrence: None)
  Receive Date: 20040305
  Receipt Date: 20040127
  Transmission Date: 20041129
  Serious: Yes (Life-Threatening)
  Sender: FDA-Public Use
  Company Number: 200410318FR

PATIENT
  Age: 60 Year
  Sex: Male
  Weight: 96 kg

DRUGS (1)
  1. LOVENOX [Suspect]
     Indication: HEART VALVE REPLACEMENT
     Route: 058
     Dates: start: 20031227, end: 20040106

REACTIONS (6)
  - CARDIAC ARREST [None]
  - EXTRADURAL HAEMATOMA [None]
  - HAEMATOMA [None]
  - HAEMORRHAGE [None]
  - NERVOUS SYSTEM DISORDER [None]
  - QUADRIPLEGIA [None]
